FAERS Safety Report 24846093 (Version 10)
Quarter: 2025Q4

REPORT INFORMATION
  Report Type: Report from Study
  Country: US (occurrence: US)
  Receive Date: 20250115
  Receipt Date: 20251224
  Transmission Date: 20260118
  Serious: No
  Sender: PFIZER
  Company Number: US-PFIZER INC-202500005967

PATIENT
  Age: 10 Year
  Sex: Female
  Weight: 28.58 kg

DRUGS (1)
  1. GENOTROPIN [Suspect]
     Active Substance: SOMATROPIN
     Dosage: 1.8 MG

REACTIONS (3)
  - Drug dose omission by device [Unknown]
  - Device connection issue [Unknown]
  - Device breakage [Unknown]
